FAERS Safety Report 12667026 (Version 1)
Quarter: 2016Q3

REPORT INFORMATION
  Report Type: Spontaneous
  Country: US (occurrence: None)
  Receive Date: 20160818
  Receipt Date: 20160818
  Transmission Date: 20161109
  Serious: No
  Sender: FDA-Public Use
  Company Number: None

PATIENT
  Age: 64 Year
  Sex: Male
  Weight: 79.83 kg

DRUGS (8)
  1. BRILINTA [Concomitant]
     Active Substance: TICAGRELOR
  2. FISH OIL [Concomitant]
     Active Substance: FISH OIL
  3. ASPIRIN. [Concomitant]
     Active Substance: ASPIRIN
  4. METOPROLOL. [Concomitant]
     Active Substance: METOPROLOL
  5. ACETAMINOPHEN. [Concomitant]
     Active Substance: ACETAMINOPHEN
  6. ATORVASTATIN [Concomitant]
     Active Substance: ATORVASTATIN
  7. ENTRESTO [Suspect]
     Active Substance: SACUBITRIL\VALSARTAN
     Indication: MYOCARDIAL INFARCTION
     Route: 048
     Dates: start: 20160810, end: 20160815
  8. ENTRESTO [Suspect]
     Active Substance: SACUBITRIL\VALSARTAN
     Indication: EJECTION FRACTION DECREASED
     Route: 048
     Dates: start: 20160810, end: 20160815

REACTIONS (8)
  - Hypotension [None]
  - Condition aggravated [None]
  - Dyspnoea [None]
  - Thirst [None]
  - Fatigue [None]
  - Peripheral swelling [None]
  - Heart rate increased [None]
  - Decreased appetite [None]

NARRATIVE: CASE EVENT DATE: 20160811
